FAERS Safety Report 8839918 (Version 1)
Quarter: 2012Q4

REPORT INFORMATION
  Report Type: Spontaneous
  Country: DE (occurrence: None)
  Receive Date: 20121011
  Receipt Date: 20121011
  Transmission Date: 20130627
  Serious: Yes (Other)
  Sender: FDA-Public Use
  Company Number: GER/GER/12/0026064

PATIENT
  Age: 38 Year
  Sex: Male

DRUGS (5)
  1. QUETIAPINE\QUETIAPINE FUMARATE [Suspect]
     Route: 048
  2. IBUBETA (IBUPROFEN) [Concomitant]
  3. BISOHEXAL (BISOPROLOL FUMARATE) [Concomitant]
  4. VIREMAX (GLUCOSAMINE SULFATE) [Concomitant]
  5. LYOGEN (FLUPHENAZINE) [Concomitant]

REACTIONS (3)
  - Epilepsy [None]
  - Muscle spasms [None]
  - Oral mucosal blistering [None]
